FAERS Safety Report 6060722-6 (Version None)
Quarter: 2009Q1

REPORT INFORMATION
  Report Type: 
  Country: None (occurrence: None)
  Receive Date: 20090202
  Receipt Date: 20090120
  Transmission Date: 20090719
  Serious: Yes (Hospitalization)
  Sender: FDA-Public Use
  Company Number: ES-ELI_LILLY_AND_COMPANY-ES200807000614

PATIENT
  Age: 85 Year
  Sex: Female

DRUGS (8)
  1. FORTEO [Suspect]
     Indication: OSTEOPOROSIS
     Dosage: 20 UG, UNKNOWN
     Route: 058
     Dates: start: 20071101, end: 20080529
  2. DIGOXIN [Concomitant]
     Dosage: UNK, UNKNOWN
     Route: 065
     Dates: end: 20080529
  3. COZAAR [Concomitant]
     Dates: start: 20030101
  4. LEVOTHROID [Concomitant]
     Dates: start: 20030101
  5. ACTONEL [Concomitant]
     Dates: start: 20030101
  6. EVISTA [Concomitant]
     Dates: start: 20030101
  7. VERAPAMIL HCL [Concomitant]
  8. CALCIUM [Concomitant]

REACTIONS (2)
  - ACUTE MYOCARDIAL INFARCTION [None]
  - HEART VALVE CALCIFICATION [None]
